FAERS Safety Report 9546460 (Version 1)
Quarter: 2013Q3

REPORT INFORMATION
  Report Type: Spontaneous
  Country: SE (occurrence: SE)
  Receive Date: 20130923
  Receipt Date: 20130923
  Transmission Date: 20140515
  Serious: Yes (Other)
  Sender: FDA-Public Use
  Company Number: SE-ACTAVIS-2013-16646

PATIENT
  Sex: Female

DRUGS (1)
  1. LAMOTRIGIN ACTAVIS [Suspect]
     Indication: BIPOLAR DISORDER
     Dosage: 200 MG, DAILY
     Route: 065
     Dates: start: 201010

REACTIONS (2)
  - Ankle fracture [Not Recovered/Not Resolved]
  - Impaired healing [Not Recovered/Not Resolved]
